FAERS Safety Report 18483018 (Version 2)
Quarter: 2020Q4

REPORT INFORMATION
  Report Type: Report from Study
  Country: CZ (occurrence: CZ)
  Receive Date: 20201109
  Receipt Date: 20201113
  Transmission Date: 20210114
  Serious: Yes (Hospitalization)
  Sender: FDA-Public Use
  Company Number: CZ-TAIHO ONCOLOGY  INC-IM-2020-00791

PATIENT
  Age: 79 Year
  Sex: Female
  Weight: 56 kg

DRUGS (9)
  1. POTASSIUM CHLORIDE. [Concomitant]
     Active Substance: POTASSIUM CHLORIDE
     Indication: HYPOKALAEMIA
     Dosage: 500 MG, TID
     Route: 048
     Dates: start: 20200715
  2. CITALOPRAM [Concomitant]
     Active Substance: CITALOPRAM HYDROBROMIDE
     Indication: DEPRESSION
     Dosage: 10 MG, QD
     Route: 048
     Dates: start: 201812
  3. LONSURF [Suspect]
     Active Substance: TIPIRACIL HYDROCHLORIDE\TRIFLURIDINE
     Indication: ADENOCARCINOMA OF COLON
     Dosage: 55 MG (35 MG/M2), BID  ON DAYS 1-5 AND 8-12 OF EACH 28-DAY CYCLE
     Route: 048
     Dates: start: 20200525, end: 20200703
  4. LONSURF [Suspect]
     Active Substance: TIPIRACIL HYDROCHLORIDE\TRIFLURIDINE
     Dosage: 50 MG (30 MG/M2), BID  ON DAYS 1-5 AND 8-12 OF EACH 28-DAY CYCLE
     Route: 048
     Dates: start: 20200727, end: 20200807
  5. FERLECIT [Concomitant]
     Indication: HYPOCHROMIC ANAEMIA
     Dosage: 62.5 MG, OTHER
     Route: 051
     Dates: start: 20200723
  6. LONSURF [Suspect]
     Active Substance: TIPIRACIL HYDROCHLORIDE\TRIFLURIDINE
     Dosage: 40 MG (25 MG/M2), BID  ON DAYS 1-5 AND 8-12 OF EACH 28-DAY CYCLE
     Route: 048
     Dates: start: 20200827, end: 20200907
  7. HELICID [Concomitant]
     Active Substance: OMEPRAZOLE
     Indication: DYSPEPSIA
     Dosage: 20 MG, QD
     Route: 048
     Dates: start: 201612
  8. BEVACIZUMAB. [Suspect]
     Active Substance: BEVACIZUMAB
     Indication: ADENOCARCINOMA OF COLON
     Dosage: 310 MG (5 MG/KG), ON DAY 1 AND 15 OF EACH 28-DAY CYCLE
     Route: 042
     Dates: start: 20200525, end: 20200622
  9. BEVACIZUMAB. [Suspect]
     Active Substance: BEVACIZUMAB
     Dosage: 280 MG (5 MG/KG), ON DAY 1 AND 15 OF EACH 28-DAY CYCLE
     Route: 042
     Dates: start: 20200727, end: 20200910

REACTIONS (2)
  - Dehydration [Recovering/Resolving]
  - Stomatitis [Not Recovered/Not Resolved]

NARRATIVE: CASE EVENT DATE: 20200914
